FAERS Safety Report 10964695 (Version 1)
Quarter: 2015Q1

REPORT INFORMATION
  Report Type: Report from Study
  Country: CA (occurrence: CA)
  Receive Date: 20150329
  Receipt Date: 20150329
  Transmission Date: 20150721
  Serious: Yes (Other)
  Sender: FDA-Public Use
  Company Number: CA-BRISTOL-MYERS SQUIBB COMPANY-BMS-2012-000015

PATIENT
  Age: 64 Year
  Sex: Female

DRUGS (1)
  1. ABATACEPT [Suspect]
     Active Substance: ABATACEPT
     Indication: RHEUMATOID ARTHRITIS
     Dosage: 750 MG, Q4WK
     Route: 042
     Dates: start: 201102

REACTIONS (3)
  - Localised infection [Unknown]
  - Foot operation [Unknown]
  - Hypotension [Unknown]

NARRATIVE: CASE EVENT DATE: 20141125
